FAERS Safety Report 10169995 (Version 2)
Quarter: 2014Q2

REPORT INFORMATION
  Report Type: Spontaneous
  Country: US (occurrence: US)
  Receive Date: 20140513
  Receipt Date: 20140513
  Transmission Date: 20141212
  Serious: Yes (Other)
  Sender: FDA-Public Use
  Company Number: CHPA2014US005964

PATIENT
  Sex: Female

DRUGS (3)
  1. GAS-X EXTSTR CHEWABLE TABS CHERRY CREME [Suspect]
     Indication: ABDOMINAL DISTENSION
     Dosage: 4 DF, QD
  2. GAS-X EXTSTR CHEWABLE TABS CHERRY CREME [Suspect]
     Dosage: 3 DF, QD
  3. GAS-X EXTSTR CHEWABLE TABS CHERRY CREME [Suspect]
     Dosage: 2 DF, QD

REACTIONS (2)
  - Herpes zoster [Unknown]
  - Abdominal distension [Recovered/Resolved]
